FAERS Safety Report 8848842 (Version 3)
Quarter: 2014Q1

REPORT INFORMATION
  Report Type: Spontaneous
  Country: US (occurrence: US)
  Receive Date: 20121018
  Receipt Date: 20140114
  Transmission Date: 20141002
  Serious: Yes (Hospitalization, Other)
  Sender: FDA-Public Use
  Company Number: US-BAYER-2012-107951

PATIENT
  Age: 36 Year
  Sex: Female
  Weight: 54.42 kg

DRUGS (2)
  1. YASMIN [Suspect]
     Indication: ACNE
     Dosage: UNK
     Dates: start: 200405, end: 200410
  2. ONE A DAY [Concomitant]

REACTIONS (9)
  - Cholecystectomy [None]
  - Procedural complication [None]
  - Cholecystitis chronic [None]
  - Scar [None]
  - Injury [None]
  - Pain [None]
  - Anxiety [None]
  - Psychological trauma [None]
  - Emotional distress [None]
